FAERS Safety Report 6098765-9 (Version None)
Quarter: 2009Q1

REPORT INFORMATION
  Report Type: 
  Country: None (occurrence: None)
  Receive Date: 20090302
  Receipt Date: 20090221
  Transmission Date: 20090719
  Serious: Yes (Other)
  Sender: FDA-Public Use
  Company Number: US-ELI_LILLY_AND_COMPANY-US200902007138

PATIENT
  Sex: Female

DRUGS (1)
  1. BYETTA [Suspect]
     Dosage: UNK, UNKNOWN

REACTIONS (5)
  - DECREASED APPETITE [None]
  - FOOD CRAVING [None]
  - KNEE ARTHROPLASTY [None]
  - SKIN TURGOR DECREASED [None]
  - WEIGHT DECREASED [None]
